FAERS Safety Report 8473606-0 (Version None)
Quarter: 2012Q2

REPORT INFORMATION
  Report Type: 
  Country: None (occurrence: None)
  Receive Date: 20120628
  Receipt Date: 20110720
  Transmission Date: 20120825
  Serious: Yes (Other)
  Sender: FDA-Public Use
  Company Number: US-MYLANLABS-2011S1013914

PATIENT
  Age: 19 Year
  Sex: Female

DRUGS (5)
  1. CLOZAPINE [Suspect]
     Indication: SCHIZOPHRENIA
     Dates: end: 20110711
  2. DEPAKOTE [Concomitant]
  3. INDERAL [Concomitant]
  4. PROZAC [Concomitant]
  5. CLOZAPINE [Suspect]
     Route: 048
     Dates: end: 20110711

REACTIONS (1)
  - GRANULOCYTOPENIA [None]
